FAERS Safety Report 17923083 (Version 1)
Quarter: 2020Q2

REPORT INFORMATION
  Report Type: Spontaneous
  Country: US (occurrence: US)
  Receive Date: 20200622
  Receipt Date: 20200622
  Transmission Date: 20200714
  Serious: Yes (Other)
  Sender: FDA-Public Use
  Company Number: US-PFIZER INC-2020234463

PATIENT
  Age: 30 Year
  Sex: Female

DRUGS (3)
  1. PHENELZINE SULFATE. [Interacting]
     Active Substance: PHENELZINE SULFATE
     Indication: DEPRESSION
  2. PHENELZINE SULFATE. [Suspect]
     Active Substance: PHENELZINE SULFATE
     Indication: BULIMIA NERVOSA
     Dosage: 30 MG/DAY
  3. CYPROHEPTADINE. [Interacting]
     Active Substance: CYPROHEPTADINE

REACTIONS (7)
  - Anorgasmia [Unknown]
  - Hallucination, visual [Recovered/Resolved]
  - Insomnia [Recovering/Resolving]
  - Toxicity to various agents [Unknown]
  - Orthostatic hypotension [Unknown]
  - Drug interaction [Unknown]
  - Irritability [Unknown]
